FAERS Safety Report 5048618-X (Version None)
Quarter: 2006Q2

REPORT INFORMATION
  Report Type: 
  Country: None (occurrence: None)
  Receive Date: 20060628
  Receipt Date: 20060619
  Transmission Date: 20061013
  Serious: Yes (Other)
  Sender: FDA-Public Use
  Company Number: HQ9535714DEC2001

PATIENT
  Age: 14 Month
  Sex: Male

DRUGS (3)
  1. REFACTO [Suspect]
     Indication: ANTI FACTOR VIII ANTIBODY POSITIVE
     Dosage: 200 IU/KG 1X PER 1 DAY; 500 IU ON DEMAND
     Dates: start: 20010811, end: 20011202
  2. REFACTO [Suspect]
     Indication: DRUG INEFFECTIVE FOR UNAPPROVED INDICATION
     Dosage: 200 IU/KG 1X PER 1 DAY; 500 IU ON DEMAND
     Dates: start: 20010811, end: 20011202
  3. REFACTO [Suspect]
     Indication: FACTOR VIII DEFICIENCY
     Dosage: 200 IU/KG 1X PER 1 DAY; 500 IU ON DEMAND
     Dates: start: 20010811, end: 20011202

REACTIONS (7)
  - ANTI FACTOR VIII ANTIBODY POSITIVE [None]
  - DRUG INEFFECTIVE FOR UNAPPROVED INDICATION [None]
  - DRUG SPECIFIC ANTIBODY PRESENT [None]
  - HAEMORRHAGE [None]
  - INJECTION SITE HAEMATOMA [None]
  - INJECTION SITE HAEMORRHAGE [None]
  - TRAUMATIC HAEMORRHAGE [None]
